FAERS Safety Report 11598521 (Version 1)
Quarter: 2015Q3

REPORT INFORMATION
  Report Type: Spontaneous
  Country: US (occurrence: US)
  Receive Date: 20150916
  Receipt Date: 20150916
  Transmission Date: 20151125
  Serious: No
  Sender: FDA-Public Use
  Company Number: US-ELI_LILLY_AND_COMPANY-US200712001346

PATIENT
  Age: 64 Year
  Sex: Female

DRUGS (2)
  1. CALCIUM [Concomitant]
     Active Substance: CALCIUM
  2. FORTEO [Suspect]
     Active Substance: TERIPARATIDE
     Indication: OSTEOPOROSIS
     Route: 058
     Dates: start: 200709, end: 200710

REACTIONS (2)
  - Hair texture abnormal [Recovering/Resolving]
  - Alopecia [Recovering/Resolving]

NARRATIVE: CASE EVENT DATE: 200710
